FAERS Safety Report 9303974 (Version 2)
Quarter: 2013Q2

REPORT INFORMATION
  Report Type: Spontaneous
  Country: BR (occurrence: BR)
  Receive Date: 20130522
  Receipt Date: 20130620
  Transmission Date: 20140414
  Serious: Yes (Other)
  Sender: FDA-Public Use
  Company Number: PHHY2013BR049516

PATIENT
  Age: 48 Year
  Sex: Male
  Weight: 70 kg

DRUGS (1)
  1. SINVASTACOR [Suspect]
     Indication: BLOOD CHOLESTEROL
     Dosage: 20 MG, QD
     Route: 048
     Dates: start: 20130514

REACTIONS (4)
  - Haemoptysis [Recovered/Resolved]
  - Sinusitis [Recovered/Resolved]
  - Headache [Recovered/Resolved]
  - Pyrexia [Recovered/Resolved]
